FAERS Safety Report 8213508-8 (Version None)
Quarter: 2012Q1

REPORT INFORMATION
  Report Type: 
  Country: None (occurrence: None)
  Receive Date: 20120315
  Receipt Date: 20120308
  Transmission Date: 20120608
  Serious: Yes (Hospitalization)
  Sender: FDA-Public Use
  Company Number: JP-MERCK-1201USA01757

PATIENT
  Age: 85 Year
  Sex: Female
  Weight: 44 kg

DRUGS (19)
  1. FOSAMAX [Suspect]
     Route: 048
     Dates: start: 20070806, end: 20071002
  2. ASTOS CA [Suspect]
     Route: 048
     Dates: start: 20080226, end: 20080812
  3. ASTOS CA [Suspect]
     Route: 048
     Dates: start: 20070806, end: 20071002
  4. NEUROTROPIN [Concomitant]
     Indication: SPONDYLOLISTHESIS
     Dosage: 3.6 UNITS ONCE A DAY, PROPERLY
     Route: 042
     Dates: start: 20100201, end: 20110715
  5. FOSAMAX [Suspect]
     Route: 048
     Dates: start: 20081217, end: 20110315
  6. LORCAM [Suspect]
     Indication: SPONDYLOLISTHESIS
     Route: 048
     Dates: start: 20080226, end: 20080812
  7. VOLTAREN [Suspect]
     Route: 054
     Dates: start: 20070723, end: 20070729
  8. ELCITONIN [Concomitant]
     Indication: PAIN
     Route: 030
     Dates: start: 20100201, end: 20110715
  9. EPEL [Suspect]
     Indication: SPONDYLOLISTHESIS
     Route: 048
     Dates: start: 20080226, end: 20080812
  10. EPEL [Suspect]
     Route: 048
     Dates: start: 20070723, end: 20071002
  11. HYALOS [Concomitant]
     Indication: OSTEOARTHRITIS
     Dosage: INTRA-ARTICULAR
     Route: 065
     Dates: start: 20090702, end: 20090804
  12. FOSAMAX [Suspect]
     Indication: OSTEOPOROSIS
     Route: 048
     Dates: start: 20080226, end: 20080812
  13. LORCAM [Suspect]
     Route: 048
     Dates: start: 20070723, end: 20071002
  14. MUCOSTA [Concomitant]
     Route: 048
     Dates: start: 20100201, end: 20110715
  15. MEGEIDE [Concomitant]
     Indication: SPONDYLOLISTHESIS
     Route: 030
     Dates: start: 20100201, end: 20110715
  16. ASTOS CA [Suspect]
     Route: 048
     Dates: start: 20081217, end: 20100316
  17. ASPARA CA [Suspect]
     Indication: OSTEOPOROSIS
     Route: 048
     Dates: start: 20100317, end: 20110315
  18. KETOPROFEN [Concomitant]
     Route: 065
     Dates: start: 20100201, end: 20110715
  19. KETOPROFEN [Concomitant]
     Indication: SPONDYLOLISTHESIS
     Route: 061
     Dates: start: 20100201, end: 20110715

REACTIONS (1)
  - FEMUR FRACTURE [None]
